FAERS Safety Report 18268257 (Version 3)
Quarter: 2020Q4

REPORT INFORMATION
  Report Type: Report from Study
  Country: IT (occurrence: IT)
  Receive Date: 20200915
  Receipt Date: 20201123
  Transmission Date: 20210113
  Serious: Yes (Hospitalization)
  Sender: FDA-Public Use
  Company Number: IT-ROCHE-2674775

PATIENT
  Age: 73 Year
  Sex: Male
  Weight: 80 kg

DRUGS (8)
  1. CARBOPLATIN. [Suspect]
     Active Substance: CARBOPLATIN
     Indication: PLEURAL MESOTHELIOMA MALIGNANT
     Dosage: ON 02/JUL/2020, HE RECEIVED MOST RECENT DOSE OF CARBOPLATIN PRIOR TO ADVERSE EVENT.
     Route: 042
     Dates: start: 20200611, end: 20201004
  2. PEMETREXED. [Suspect]
     Active Substance: PEMETREXED
     Indication: PLEURAL MESOTHELIOMA MALIGNANT
     Dosage: ON 02/JUL/2020, HE RECEIVED MOST RECENT DOSE OF PEMETRAXED PRIOR TO ADVERSE EVENT.
     Route: 042
     Dates: start: 20200611, end: 20201004
  3. LASIX [Concomitant]
     Active Substance: FUROSEMIDE
     Dates: start: 2020
  4. ATEZOLIZUMAB. [Suspect]
     Active Substance: ATEZOLIZUMAB
     Indication: PLEURAL MESOTHELIOMA MALIGNANT
     Dosage: ON 02/JUL/2020, HE RECEIVED MOST RECENT DOSE OF ATEZOLIZUMAB PRIOR TO ADVERSE EVENT.
     Route: 042
     Dates: start: 20200611, end: 20201004
  5. BEVACIZUMAB. [Suspect]
     Active Substance: BEVACIZUMAB
     Indication: PLEURAL MESOTHELIOMA MALIGNANT
     Dosage: ON 02/JUL/2020, HE RECEIVED MOST RECENT DOSE OF BEVACIZUMAB PRIOR TO ADVERSE EVENT.
     Route: 042
     Dates: start: 20200611, end: 20201004
  6. PREDNISONE. [Concomitant]
     Active Substance: PREDNISONE
  7. METILPREDNISOLONE [Concomitant]
     Active Substance: METHYLPREDNISOLONE
  8. CORDARONE [Concomitant]
     Active Substance: AMIODARONE HYDROCHLORIDE
     Dates: start: 20200421

REACTIONS (2)
  - Renal impairment [Recovered/Resolved with Sequelae]
  - Tubulointerstitial nephritis [Recovering/Resolving]

NARRATIVE: CASE EVENT DATE: 20200813
